FAERS Safety Report 13056334 (Version 2)
Quarter: 2017Q1

REPORT INFORMATION
  Report Type: Spontaneous
  Country: GB (occurrence: GB)
  Receive Date: 20161222
  Receipt Date: 20170221
  Transmission Date: 20170428
  Serious: Yes (Death, Life-Threatening, Hospitalization, Other)
  Sender: FDA-Public Use
  Company Number: GB-GILEAD-2016-0248580

PATIENT
  Age: 80 Year
  Sex: Male

DRUGS (1)
  1. ZYDELIG [Suspect]
     Active Substance: IDELALISIB
     Indication: CHRONIC LYMPHOCYTIC LEUKAEMIA
     Dosage: 150 MG, BID
     Route: 048
     Dates: start: 20160121, end: 20161115

REACTIONS (4)
  - Multiple organ dysfunction syndrome [Fatal]
  - Dehydration [Unknown]
  - Electrolyte imbalance [Unknown]
  - Colitis [Fatal]

NARRATIVE: CASE EVENT DATE: 201610
